FAERS Safety Report 12371060 (Version 1)
Quarter: 2016Q2

REPORT INFORMATION
  Report Type: Report from Study
  Country: BR (occurrence: BR)
  Receive Date: 20160516
  Receipt Date: 20160516
  Transmission Date: 20160815
  Serious: Yes (Death, Hospitalization, Other)
  Sender: FDA-Public Use
  Company Number: PHHY2016BR066172

PATIENT
  Age: 84 Year
  Sex: Female

DRUGS (2)
  1. EXELON PATCH [Suspect]
     Active Substance: RIVASTIGMINE
     Indication: DEMENTIA
     Dosage: PATCH 5 CM2
     Route: 062
  2. EXELON [Suspect]
     Active Substance: RIVASTIGMINE TARTRATE
     Indication: DEMENTIA
     Dosage: UNK, BID
     Route: 048

REACTIONS (12)
  - Pain [Unknown]
  - Pneumonia [Unknown]
  - Gastrointestinal disorder [Unknown]
  - Speech disorder [Unknown]
  - Cardiac arrest [Fatal]
  - Rectal haemorrhage [Unknown]
  - Eating disorder [Unknown]
  - Dysphagia [Unknown]
  - Dysarthria [Unknown]
  - Dyspnoea [Unknown]
  - Pneumonia aspiration [Unknown]
  - Malaise [Unknown]

NARRATIVE: CASE EVENT DATE: 201507
